FAERS Safety Report 22270184 (Version 1)
Quarter: 2023Q2

REPORT INFORMATION
  Report Type: Spontaneous
  Country: US (occurrence: None)
  Receive Date: 20230428
  Receipt Date: 20230428
  Transmission Date: 20230721
  Serious: No
  Sender: FDA-Public Use
  Company Number: None

PATIENT
  Sex: Female
  Weight: 83.9 kg

DRUGS (1)
  1. CISPLATIN [Suspect]
     Active Substance: CISPLATIN
     Dates: end: 20230419

REACTIONS (4)
  - Dysphagia [None]
  - Decreased appetite [None]
  - Lymphocyte count decreased [None]
  - Fluid intake reduced [None]

NARRATIVE: CASE EVENT DATE: 20230425
